FAERS Safety Report 6839907-4 (Version None)
Quarter: 2010Q2

REPORT INFORMATION
  Report Type: 
  Country: None (occurrence: None)
  Receive Date: 20100629
  Receipt Date: 20100326
  Transmission Date: 20101027
  Serious: Yes (Other)
  Sender: FDA-Public Use
  Company Number: US-WYE-H14383810

PATIENT

DRUGS (1)
  1. PRISTIQ [Suspect]
     Dosage: UNKNOWN START DOSE ; DOSE REDUCED TO 50 MG OR 100 MG ; 200 MG 1X PER 1 DAY

REACTIONS (1)
  - HYPERNATRAEMIA [None]
